FAERS Safety Report 19466168 (Version 2)
Quarter: 2021Q2

REPORT INFORMATION
  Report Type: Spontaneous
  Country: CN (occurrence: CN)
  Receive Date: 20210627
  Receipt Date: 20210629
  Transmission Date: 20210717
  Serious: Yes (Other)
  Sender: FDA-Public Use
  Company Number: CN-009507513-2106CHN006114

PATIENT
  Age: 92 Year
  Sex: Female
  Weight: 55 kg

DRUGS (2)
  1. TIENAM [Suspect]
     Active Substance: CILASTATIN SODIUM\IMIPENEM
     Indication: PNEUMONIA
     Dosage: 1 G, EVERY 12 HOURS (Q12H) (TWO TIMES A DAY)
     Route: 041
     Dates: start: 20210615, end: 20210616
  2. SODIUM CHLORIDE. [Concomitant]
     Active Substance: SODIUM CHLORIDE
     Indication: MEDICATION DILUTION
     Dosage: 100 ML, EVERY 12 HOURS (Q12H) (TWO TIMES A DAY)
     Route: 041
     Dates: start: 20210615, end: 20210616

REACTIONS (4)
  - Epilepsy [Recovered/Resolved]
  - Product use issue [Unknown]
  - Blood pressure increased [Recovered/Resolved]
  - Tachycardia [Recovered/Resolved]

NARRATIVE: CASE EVENT DATE: 20210615
